FAERS Safety Report 6200500-8 (Version None)
Quarter: 2009Q2

REPORT INFORMATION
  Report Type: 
  Country: None (occurrence: None)
  Receive Date: 20090522
  Receipt Date: 20090514
  Transmission Date: 20091009
  Serious: Yes (Other)
  Sender: FDA-Public Use
  Company Number: US-AMGEN-QUU333344

PATIENT
  Sex: Female
  Weight: 15.8 kg

DRUGS (2)
  1. ENBREL [Suspect]
     Indication: JUVENILE ARTHRITIS
     Route: 058
     Dates: start: 20080729, end: 20090218
  2. METHOTREXATE [Concomitant]

REACTIONS (3)
  - AGITATION [None]
  - RASH [None]
  - SWELLING FACE [None]
